FAERS Safety Report 23233109 (Version 1)
Quarter: 2023Q4

REPORT INFORMATION
  Report Type: Report from Study
  Country: US (occurrence: US)
  Receive Date: 20231128
  Receipt Date: 20231128
  Transmission Date: 20240109
  Serious: Yes (Hospitalization, Other)
  Sender: FDA-Public Use
  Company Number: US-UCBSA-2023055224

PATIENT
  Age: 30 Year
  Sex: Female

DRUGS (4)
  1. NAYZILAM [Interacting]
     Active Substance: MIDAZOLAM
     Indication: Seizure
     Dosage: INTRANASAL
  2. KEPPRA [Interacting]
     Active Substance: LEVETIRACETAM
     Indication: Seizure
     Dosage: UNK
  3. VALTOCO [Interacting]
     Active Substance: DIAZEPAM
     Indication: Seizure
     Dosage: INTRANASAL
  4. VALIUM [Interacting]
     Active Substance: DIAZEPAM
     Indication: Seizure
     Dosage: UNK

REACTIONS (5)
  - Seizure [Unknown]
  - Anaemia [Unknown]
  - Asthma [Unknown]
  - Drug interaction [Unknown]
  - Drug ineffective [Unknown]
